FAERS Safety Report 25277361 (Version 1)
Quarter: 2025Q2

REPORT INFORMATION
  Report Type: Spontaneous
  Country: AT (occurrence: AT)
  Receive Date: 20250507
  Receipt Date: 20250507
  Transmission Date: 20250716
  Serious: Yes (Hospitalization, Other)
  Sender: ABBVIE
  Company Number: AT-ABBVIE-6265424

PATIENT
  Age: 31 Year
  Sex: Male

DRUGS (5)
  1. HUMIRA [Suspect]
     Active Substance: ADALIMUMAB
     Indication: Colitis ulcerative
     Route: 058
  2. RINVOQ [Suspect]
     Active Substance: UPADACITINIB
     Indication: Colitis ulcerative
     Route: 048
     Dates: start: 202404
  3. RINVOQ [Suspect]
     Active Substance: UPADACITINIB
     Indication: Colitis ulcerative
     Route: 048
     Dates: start: 202310, end: 202402
  4. VEDOLIZUMAB [Concomitant]
     Active Substance: VEDOLIZUMAB
     Indication: Product used for unknown indication
     Dates: start: 202310
  5. VEDOLIZUMAB [Concomitant]
     Active Substance: VEDOLIZUMAB
     Indication: Product used for unknown indication
     Dates: start: 202404

REACTIONS (13)
  - Lupus-like syndrome [Recovering/Resolving]
  - Headache [Unknown]
  - Rash [Unknown]
  - Myalgia [Unknown]
  - Colitis ulcerative [Recovered/Resolved]
  - Serositis [Unknown]
  - Arthralgia [Unknown]
  - Colitis ulcerative [Recovered/Resolved]
  - Faecal calprotectin increased [Unknown]
  - Gastroenteritis clostridial [Unknown]
  - Colitis ulcerative [Recovered/Resolved]
  - Colitis ulcerative [Unknown]
  - Immune system disorder [Unknown]

NARRATIVE: CASE EVENT DATE: 20190101
